FAERS Safety Report 6147528-4 (Version None)
Quarter: 2009Q2

REPORT INFORMATION
  Report Type: 
  Country: None (occurrence: None)
  Receive Date: 20090408
  Receipt Date: 20090330
  Transmission Date: 20091009
  Serious: Yes (Other)
  Sender: FDA-Public Use
  Company Number: AU-ASTRAZENECA-2009AP02330

PATIENT
  Age: 23292 Day
  Sex: Male
  Weight: 65 kg

DRUGS (3)
  1. IRESSA [Suspect]
     Indication: HEAD AND NECK CANCER
     Route: 048
     Dates: start: 20061211, end: 20090119
  2. CARBOPLATIN [Suspect]
     Indication: HEAD AND NECK CANCER
     Route: 042
     Dates: start: 20061211, end: 20070116
  3. RADIOTHERAPY [Suspect]
     Indication: HEAD AND NECK CANCER

REACTIONS (1)
  - ACUTE MYELOID LEUKAEMIA [None]
